FAERS Safety Report 4775690-4 (Version None)
Quarter: 2005Q3

REPORT INFORMATION
  Report Type: 
  Country: None (occurrence: None)
  Receive Date: 20050920
  Receipt Date: 20050920
  Transmission Date: 20060218
  Serious: Yes (Hospitalization)
  Sender: FDA-Public Use
  Company Number: None

PATIENT
  Age: 75 Year
  Sex: Male
  Weight: 80.7403 kg

DRUGS (16)
  1. METHADONE 10MG [Suspect]
     Indication: PAIN
     Dosage: 10MG TID PO
     Route: 048
  2. ATENOLOL [Suspect]
     Indication: HYPERTENSION
     Dosage: 12.5MG DAILY PO
     Route: 048
  3. METHADONE HCL [Concomitant]
  4. COLACE [Concomitant]
  5. CELEXA [Concomitant]
  6. LAMICTAL [Concomitant]
  7. MULTI-VITAMIN [Concomitant]
  8. SYNTHROID [Concomitant]
  9. VITAMIN B-12 [Concomitant]
  10. METAMUCIL [Concomitant]
  11. AMBIEN [Concomitant]
  12. ALLOPURINOL [Concomitant]
  13. TAMSULOSIN [Concomitant]
  14. HYDROCHLOROTHIAZIDE [Concomitant]
  15. LISINOPRIL [Concomitant]
  16. ATENOLOL [Concomitant]

REACTIONS (2)
  - BRADYCARDIA [None]
  - HYPOTENSION [None]
